FAERS Safety Report 8156925-7 (Version None)
Quarter: 2012Q1

REPORT INFORMATION
  Report Type: 
  Country: None (occurrence: None)
  Receive Date: 20120222
  Receipt Date: 20120208
  Transmission Date: 20120608
  Serious: Yes (Life-Threatening, Hospitalization, Other)
  Sender: FDA-Public Use
  Company Number: US-BRISTOL-MYERS SQUIBB COMPANY-16395048

PATIENT
  Age: 60 Year
  Sex: Male
  Weight: 73 kg

DRUGS (10)
  1. PROCHLORPERAZINE [Concomitant]
     Indication: NAUSEA
     Dates: start: 20111213
  2. CISPLATIN [Suspect]
     Indication: HEAD AND NECK CANCER
     Dosage: TOTAL DOSE: 197 MG; LAST DOSE ON 03-JAN-2012.
     Route: 042
     Dates: start: 20111213, end: 20120103
  3. SIMVASTATIN [Concomitant]
     Indication: HYPERCHOLESTEROLAEMIA
     Dates: start: 20010101
  4. AMLODIPINE [Concomitant]
  5. OXYCODONE HCL [Concomitant]
     Indication: ORAL PAIN
     Dates: start: 20120109
  6. EMLA [Concomitant]
     Indication: PROPHYLAXIS
     Dates: start: 20111219
  7. AMLODIPINE BESYLATE AND BENAZEPRIL HCL [Concomitant]
     Indication: HYPERTENSION
     Dates: start: 20010101
  8. HYDROCHLOROTHIAZIDE [Concomitant]
     Indication: HYPERTENSION
     Dates: start: 20010101
  9. ACETYLSALICYLIC ACID SRT [Concomitant]
     Indication: CARDIOVASCULAR EVENT PROPHYLAXIS
     Dates: start: 20010101
  10. MULTI-VITAMIN [Concomitant]
     Indication: SUPPLEMENTATION THERAPY
     Dates: start: 20010101

REACTIONS (2)
  - DIABETES MELLITUS [None]
  - HYPERGLYCAEMIC HYPEROSMOLAR NONKETOTIC SYNDROME [None]
